FAERS Safety Report 4975425-6 (Version None)
Quarter: 2006Q2

REPORT INFORMATION
  Report Type: 
  Country: None (occurrence: None)
  Receive Date: 20060418
  Receipt Date: 20051209
  Transmission Date: 20061013
  Serious: Yes (Hospitalization, Disabling)
  Sender: FDA-Public Use
  Company Number: US-MERCK-0512USA01722

PATIENT
  Age: 66 Year
  Sex: Female
  Weight: 125 kg

DRUGS (16)
  1. VIOXX [Suspect]
     Indication: ARTHRITIS
     Route: 048
     Dates: start: 20000101, end: 20040901
  2. BUMEX [Concomitant]
     Route: 065
  3. QUININE [Concomitant]
     Route: 065
  4. DOXEPIN HYDROCHLORIDE [Concomitant]
     Route: 065
  5. ALDACTONE [Concomitant]
     Route: 065
  6. PREVACID [Concomitant]
     Route: 065
  7. NITROGLYCERIN [Concomitant]
     Route: 065
  8. NEXIUM [Concomitant]
     Route: 065
  9. GUANABENZ [Concomitant]
     Route: 065
  10. PRILOSEC [Concomitant]
     Route: 065
  11. ALBUTEROL [Concomitant]
     Route: 065
  12. PROPOXYPHENE HYDROCHLORIDE [Concomitant]
     Route: 065
  13. RELAFEN [Concomitant]
     Route: 065
  14. TIMOLOL [Concomitant]
     Route: 065
  15. PLAVIX [Concomitant]
     Route: 065
  16. METOPROLOL [Concomitant]
     Route: 065

REACTIONS (47)
  - AMNESIA [None]
  - ANAEMIA [None]
  - ANGINA PECTORIS [None]
  - ANTINUCLEAR ANTIBODY POSITIVE [None]
  - ANXIETY [None]
  - ARTERIAL STENOSIS [None]
  - ARTHRALGIA [None]
  - ASTHENIA [None]
  - AZOTAEMIA [None]
  - BACK PAIN [None]
  - BRADYCARDIA [None]
  - BRONCHITIS [None]
  - CARDIAC FAILURE CONGESTIVE [None]
  - CHEST PAIN [None]
  - CORONARY ARTERY DISEASE [None]
  - DEHYDRATION [None]
  - DEPRESSION [None]
  - DYSPNOEA [None]
  - FATIGUE [None]
  - GASTRITIS [None]
  - GASTROOESOPHAGEAL REFLUX DISEASE [None]
  - GOUT [None]
  - HAEMORRHOIDAL HAEMORRHAGE [None]
  - HIATUS HERNIA [None]
  - HYPERKALAEMIA [None]
  - HYPERLIPIDAEMIA [None]
  - HYPERTENSION [None]
  - HYPERTENSIVE HEART DISEASE [None]
  - HYPERURICAEMIA [None]
  - HYPOKALAEMIA [None]
  - HYPOTENSION [None]
  - JOINT STIFFNESS [None]
  - MONARTHRITIS [None]
  - MYOCARDIAL INFARCTION [None]
  - OCCULT BLOOD POSITIVE [None]
  - OESOPHAGEAL DISORDER [None]
  - PAIN [None]
  - PAIN IN EXTREMITY [None]
  - POLYURIA [None]
  - POST PROCEDURAL HAEMATOMA [None]
  - RENAL FAILURE [None]
  - RENAL FAILURE ACUTE [None]
  - SLEEP DISORDER [None]
  - STASIS DERMATITIS [None]
  - URINARY TRACT INFECTION [None]
  - VENOUS INSUFFICIENCY [None]
  - VENTRICULAR HYPERTROPHY [None]
